FAERS Safety Report 9290774 (Version 5)
Quarter: 2013Q3

REPORT INFORMATION
  Report Type: Spontaneous
  Country: US (occurrence: US)
  Receive Date: 20130515
  Receipt Date: 20130705
  Transmission Date: 20140515
  Serious: No
  Sender: FDA-Public Use
  Company Number: US-PFIZER INC-2013149756

PATIENT
  Age: 39 Year
  Sex: Male
  Weight: 94.33 kg

DRUGS (2)
  1. ADVIL PM [Suspect]
     Indication: HEADACHE
     Dosage: UNK, AS NEEDED
     Route: 048
     Dates: start: 2012, end: 201304
  2. ADVIL PM [Suspect]
     Indication: SLEEP DISORDER

REACTIONS (8)
  - Poor quality drug administered [Unknown]
  - Throat irritation [Unknown]
  - Decreased appetite [Not Recovered/Not Resolved]
  - Vomiting [Unknown]
  - Feeling abnormal [Unknown]
  - Product contamination physical [Unknown]
  - Product physical issue [Unknown]
  - Product packaging quantity issue [Unknown]
